FAERS Safety Report 7369635-0 (Version None)
Quarter: 2011Q1

REPORT INFORMATION
  Report Type: 
  Country: None (occurrence: None)
  Receive Date: 20110315
  Receipt Date: 20110311
  Transmission Date: 20110831
  Serious: Yes (Death)
  Sender: FDA-Public Use
  Company Number: 2011SP006635

PATIENT
  Age: 57 Year
  Sex: Male

DRUGS (3)
  1. INTRON A [Suspect]
     Indication: MALIGNANT MELANOMA
     Dosage: 3 MIU;TIW;SC
     Route: 058
     Dates: start: 20081110, end: 20100505
  2. OLMESARTAN MEDOXOMIL [Concomitant]
  3. BISOPROLOL 5 [Concomitant]

REACTIONS (1)
  - ACUTE MYOCARDIAL INFARCTION [None]
